FAERS Safety Report 20970041 (Version 3)
Quarter: 2023Q1

REPORT INFORMATION
  Report Type: Spontaneous
  Country: US (occurrence: US)
  Receive Date: 20220616
  Receipt Date: 20230106
  Transmission Date: 20230418
  Serious: No
  Sender: FDA-Public Use
  Company Number: US-SANOFI-01127555

PATIENT
  Age: 76 Year
  Sex: Female

DRUGS (3)
  1. LANTUS SOLOSTAR [Suspect]
     Active Substance: INSULIN GLARGINE
     Indication: Type 2 diabetes mellitus
     Dosage: 40 IU, QD
  2. LANTUS SOLOSTAR [Suspect]
     Active Substance: INSULIN GLARGINE
     Dosage: 30 IU, HS (QHS)
  3. TRULICITY [Suspect]
     Active Substance: DULAGLUTIDE

REACTIONS (5)
  - Pain in extremity [Unknown]
  - Blood glucose increased [Unknown]
  - Device mechanical issue [Unknown]
  - Multiple use of single-use product [Unknown]
  - Product storage error [Unknown]
